FAERS Safety Report 24790977 (Version 1)
Quarter: 2024Q4

REPORT INFORMATION
  Report Type: Spontaneous
  Country: JP (occurrence: JP)
  Receive Date: 20241230
  Receipt Date: 20241230
  Transmission Date: 20250114
  Serious: Yes (Other)
  Sender: AMGEN
  Company Number: JP-AMGEN-JPNSP2024253193

PATIENT

DRUGS (2)
  1. OTEZLA [Suspect]
     Active Substance: APREMILAST
     Indication: Product used for unknown indication
     Dosage: UNK
     Route: 048
  2. OTEZLA [Suspect]
     Active Substance: APREMILAST
     Dosage: UNK (10 MG QD FOR 3 DAYS, 20 MG ONCE DAILY FOR 2 DAYS, FROM THE 6TH DAY ONWARDS, 30 MG ONCE DAILY FO
     Route: 048

REACTIONS (1)
  - Renal impairment [Unknown]
